FAERS Safety Report 7948810-8 (Version None)
Quarter: 2011Q4

REPORT INFORMATION
  Report Type: 
  Country: None (occurrence: None)
  Receive Date: 20111130
  Receipt Date: 20111128
  Transmission Date: 20120403
  Serious: No
  Sender: FDA-Public Use
  Company Number: US-PFIZER INC-2011268142

PATIENT
  Sex: Male
  Weight: 151 kg

DRUGS (6)
  1. AVAPRO [Concomitant]
     Dosage: 75 MG, UNK
     Route: 048
  2. SUTENT [Suspect]
     Dosage: 50 MG, 1X/DAY
     Route: 048
  3. BYETTA [Concomitant]
     Dosage: 10 UG, UNK
  4. MAXZIDE [Concomitant]
     Dosage: 25 UNK, UNK
     Route: 048
  5. LIPITOR [Concomitant]
     Dosage: 10 MG, UNK
     Route: 048
  6. METFORMIN [Concomitant]
     Dosage: 500 MG, UNK
     Route: 048

REACTIONS (5)
  - MYALGIA [None]
  - SOMNOLENCE [None]
  - ARTHRALGIA [None]
  - TEMPERATURE INTOLERANCE [None]
  - DIARRHOEA [None]
